FAERS Safety Report 9802886 (Version 1)
Quarter: 2014Q1

REPORT INFORMATION
  Report Type: Spontaneous
  Country: US (occurrence: US)
  Receive Date: 20140108
  Receipt Date: 20140108
  Transmission Date: 20141002
  Serious: No
  Sender: FDA-Public Use
  Company Number: US-009507513-1401USA002263

PATIENT
  Sex: Female

DRUGS (2)
  1. RIZATRIPTAN BENZOATE [Suspect]
     Indication: MIGRAINE
  2. ZOMIG [Suspect]

REACTIONS (2)
  - Rash [Recovering/Resolving]
  - Feeling abnormal [Unknown]
